FAERS Safety Report 8114864-1 (Version None)
Quarter: 2012Q1

REPORT INFORMATION
  Report Type: 
  Country: None (occurrence: None)
  Receive Date: 20120112
  Receipt Date: 20111207
  Transmission Date: 20120608
  Serious: Yes (Life-Threatening, Hospitalization)
  Sender: FDA-Public Use
  Company Number: 2011AA001375

PATIENT
  Age: 65 Year
  Sex: Female
  Weight: 80 kg

DRUGS (6)
  1. OMEPRAZOLE [Concomitant]
  2. RANITIDINE [Concomitant]
  3. PHARMALGEN (802) VESPULA SPP./WESPENGIFT/VENIN DE GUEPE (PHARMALGEN (8 [Suspect]
     Dosage: 100 MICROGRAMS;WEEKLY;SUBCUTANEOUS
     Route: 058
     Dates: start: 20070301, end: 20111205
  4. NEBIVOLOL HCL [Concomitant]
  5. SPIRONOLACTONE [Concomitant]
  6. NEURONTIN [Concomitant]

REACTIONS (4)
  - BLOOD PRESSURE IMMEASURABLE [None]
  - MALAISE [None]
  - LOSS OF CONSCIOUSNESS [None]
  - FEELING HOT [None]
